FAERS Safety Report 13654977 (Version 1)
Quarter: 2017Q2

REPORT INFORMATION
  Report Type: Spontaneous
  Country: DE (occurrence: DE)
  Receive Date: 20170615
  Receipt Date: 20170615
  Transmission Date: 20170830
  Serious: Yes (Disabling, Other)
  Sender: FDA-Public Use
  Company Number: DE-ASTRAZENECA-2017SE61872

PATIENT
  Age: 46 Year
  Sex: Female

DRUGS (19)
  1. AMISULPRIDE [Suspect]
     Active Substance: AMISULPRIDE
     Route: 065
     Dates: start: 20140821, end: 20150514
  2. PIPAMPERONE [Suspect]
     Active Substance: PIPAMPERONE
     Route: 065
     Dates: start: 20140809, end: 20140904
  3. QUETIAPINE. [Suspect]
     Active Substance: QUETIAPINE
     Route: 048
     Dates: start: 20140522, end: 20140928
  4. RAMIPRIL. [Concomitant]
     Active Substance: RAMIPRIL
     Dates: start: 20131219
  5. QUETIAPINE. [Suspect]
     Active Substance: QUETIAPINE
     Route: 048
     Dates: start: 20100515, end: 20130110
  6. SERTRALINE [Suspect]
     Active Substance: SERTRALINE HYDROCHLORIDE
     Route: 065
     Dates: start: 20140610, end: 20140904
  7. PIPAMPERONE [Suspect]
     Active Substance: PIPAMPERONE
     Route: 065
     Dates: start: 20140428, end: 20140808
  8. RAMIPRIL. [Concomitant]
     Active Substance: RAMIPRIL
     Dates: start: 20121220, end: 20131218
  9. METOPROLOL. [Concomitant]
     Active Substance: METOPROLOL
     Dates: start: 20130905, end: 20141015
  10. QUETIAPINE. [Suspect]
     Active Substance: QUETIAPINE
     Route: 048
     Dates: start: 20130111, end: 20130130
  11. QUETIAPINE. [Suspect]
     Active Substance: QUETIAPINE
     Route: 048
     Dates: start: 20130701, end: 20140521
  12. QUETIAPINE. [Suspect]
     Active Substance: QUETIAPINE
     Route: 048
     Dates: start: 20130701, end: 20140521
  13. METOPROLOL. [Concomitant]
     Active Substance: METOPROLOL
     Dates: start: 20160120
  14. AMISULPRIDE [Suspect]
     Active Substance: AMISULPRIDE
     Route: 065
     Dates: start: 20140504, end: 20140612
  15. LEVOMEPROMAZINE [Suspect]
     Active Substance: LEVOMEPROMAZINE
     Route: 065
     Dates: start: 20140503, end: 20140805
  16. AMISULPRIDE [Suspect]
     Active Substance: AMISULPRIDE
     Route: 065
     Dates: start: 20140613, end: 20140820
  17. PIPAMPERONE [Suspect]
     Active Substance: PIPAMPERONE
     Route: 065
     Dates: start: 20140905, end: 20141015
  18. LEVOMEPROMAZINE [Suspect]
     Active Substance: LEVOMEPROMAZINE
     Route: 065
     Dates: start: 20140806, end: 20140925
  19. METOPROLOL. [Concomitant]
     Active Substance: METOPROLOL
     Dates: start: 20141016, end: 20160119

REACTIONS (2)
  - Weight increased [Unknown]
  - Metabolic syndrome [Unknown]

NARRATIVE: CASE EVENT DATE: 20140701
